FAERS Safety Report 24246887 (Version 2)
Quarter: 2024Q3

REPORT INFORMATION
  Report Type: Spontaneous
  Country: US (occurrence: US)
  Receive Date: 20240826
  Receipt Date: 20240926
  Transmission Date: 20241016
  Serious: Yes (Other)
  Sender: AUROBINDO
  Company Number: US-AUROBINDO-AUR-APL-2024-040751

PATIENT
  Sex: Male

DRUGS (8)
  1. AMIODARONE HYDROCHLORIDE [Suspect]
     Active Substance: AMIODARONE HYDROCHLORIDE
     Indication: Ventricular extrasystoles
     Dosage: 150 MILLIGRAM, 10 MINUTES (LOADING DOSE)
     Route: 042
  2. METHYLPREDNISOLONE [Suspect]
     Active Substance: METHYLPREDNISOLONE
     Indication: Myocarditis
     Dosage: 100 MILLIGRAM
     Route: 042
  3. MILRINONE LACTATE [Suspect]
     Active Substance: MILRINONE LACTATE
     Indication: Cardiac failure
     Dosage: 0.5 MICROGRAM/KILOGRAM/MIN
     Route: 065
  4. MILRINONE LACTATE [Suspect]
     Active Substance: MILRINONE LACTATE
     Dosage: 0.5-0.75 ?G/KG/MIN
     Route: 065
  5. MILRINONE LACTATE [Suspect]
     Active Substance: MILRINONE LACTATE
     Dosage: 0.125  ?G/KG/MIN
  6. DOBUTAMINE [Suspect]
     Active Substance: DOBUTAMINE HYDROCHLORIDE
     Indication: Cardiac failure
     Dosage: 5 MICROGRAM/KILOGRAM/MINUTE
     Route: 065
  7. DOBUTAMINE [Suspect]
     Active Substance: DOBUTAMINE HYDROCHLORIDE
     Dosage: 5-7.5 ?G/KG/MIN
     Route: 065
  8. LIDOCAINE [Concomitant]
     Active Substance: LIDOCAINE
     Indication: Ventricular extrasystoles
     Dosage: UNK
     Route: 065

REACTIONS (3)
  - Kounis syndrome [Unknown]
  - Myocardial injury [Unknown]
  - Drug ineffective [Unknown]
